FAERS Safety Report 9304573 (Version 2)
Quarter: 2013Q2

REPORT INFORMATION
  Report Type: Report from Study
  Country: US (occurrence: US)
  Receive Date: 20130523
  Receipt Date: 20130626
  Transmission Date: 20140414
  Serious: Yes (Hospitalization)
  Sender: FDA-Public Use
  Company Number: US-ROCHE-1227917

PATIENT
  Age: 72 Year
  Sex: Female
  Weight: 68.1 kg

DRUGS (3)
  1. XELODA [Suspect]
     Indication: BREAST CANCER METASTATIC
     Route: 048
     Dates: start: 20121201, end: 20121215
  2. XELODA [Suspect]
     Route: 048
     Dates: start: 20121222, end: 20130207
  3. XELODA [Suspect]
     Route: 048
     Dates: start: 20130214, end: 20130606

REACTIONS (9)
  - Hip arthroplasty [Recovering/Resolving]
  - Staphylococcal infection [Recovering/Resolving]
  - Pain in extremity [Recovered/Resolved]
  - Diarrhoea [Recovered/Resolved]
  - Skin exfoliation [Recovered/Resolved]
  - Erythema [Recovered/Resolved]
  - Dehydration [Recovered/Resolved]
  - Hypotension [Recovered/Resolved]
  - Skin exfoliation [Recovered/Resolved]
